FAERS Safety Report 4797447-0 (Version None)
Quarter: 2005Q4

REPORT INFORMATION
  Report Type: 
  Country: None (occurrence: None)
  Receive Date: 20051006
  Receipt Date: 20051006
  Transmission Date: 20060501
  Serious: Yes (Hospitalization)
  Sender: FDA-Public Use
  Company Number: None

PATIENT
  Age: 78 Year
  Sex: Female

DRUGS (6)
  1. WARFARIN SODIUM [Suspect]
     Indication: ATRIAL FIBRILLATION
     Dosage: 5 MG PO DAILY PTA
     Route: 048
     Dates: start: 20050515, end: 20050516
  2. AMIODARONE [Suspect]
     Indication: ATRIAL FIBRILLATION
     Dosage: 400 MG PO Q8 H
     Route: 048
     Dates: start: 20050515, end: 20050520
  3. SIMVASTATIN [Concomitant]
  4. CARVEDILAL [Concomitant]
  5. RANITIDINE [Concomitant]
  6. TENORITIC [Concomitant]

REACTIONS (1)
  - INTERNATIONAL NORMALISED RATIO INCREASED [None]
